FAERS Safety Report 16692112 (Version 2)
Quarter: 2019Q3

REPORT INFORMATION
  Report Type: Spontaneous
  Country: ID (occurrence: ID)
  Receive Date: 20190812
  Receipt Date: 20190920
  Transmission Date: 20191004
  Serious: Yes (Other)
  Sender: FDA-Public Use
  Company Number: ID-ASTRAZENECA-2019SF14264

PATIENT
  Age: 47 Year
  Sex: Male

DRUGS (2)
  1. SYMBICORT [Suspect]
     Active Substance: BUDESONIDE\FORMOTEROL FUMARATE DIHYDRATE
     Dosage: 160MCG/4.5MCG, 2 INHALATIONS PER DAY TO 4 INHALATIONS PER DAY
     Route: 055
  2. SYMBICORT [Suspect]
     Active Substance: BUDESONIDE\FORMOTEROL FUMARATE DIHYDRATE
     Dosage: 160MCG/4.5MCG, FREQUENCY UNKNOWN
     Route: 055
     Dates: start: 2012

REACTIONS (4)
  - Product use issue [Unknown]
  - Fatigue [Unknown]
  - Dyspnoea [Unknown]
  - Device malfunction [Unknown]
